FAERS Safety Report 21185221 (Version 2)
Quarter: 2022Q3

REPORT INFORMATION
  Report Type: Report from Study
  Country: US (occurrence: US)
  Receive Date: 20220808
  Receipt Date: 20220812
  Transmission Date: 20221026
  Serious: Yes (Other)
  Sender: FDA-Public Use
  Company Number: US-BAYER-2022A108396

PATIENT
  Age: 73 Year
  Sex: Female

DRUGS (2)
  1. EYLEA [Suspect]
     Active Substance: AFLIBERCEPT
     Indication: Neovascular age-related macular degeneration
     Dosage: STUDY PERIOD: ACTIVE TREATMENT
     Route: 031
     Dates: start: 20201029, end: 20220708
  2. EYLEA [Suspect]
     Active Substance: AFLIBERCEPT
     Indication: Neovascular age-related macular degeneration
     Dosage: STUDY PERIOD: ACTIVE TREATMENT
     Route: 031
     Dates: start: 20201029, end: 20220708

REACTIONS (1)
  - Detachment of macular retinal pigment epithelium [Not Recovered/Not Resolved]

NARRATIVE: CASE EVENT DATE: 20220801
